FAERS Safety Report 6528596-4 (Version None)
Quarter: 2010Q1

REPORT INFORMATION
  Report Type: 
  Country: None (occurrence: None)
  Receive Date: 20100105
  Receipt Date: 20100105
  Transmission Date: 20100710
  Serious: Yes (Other)
  Sender: FDA-Public Use
  Company Number: None

PATIENT
  Age: 43 Year
  Sex: Male
  Weight: 95.2554 kg

DRUGS (1)
  1. GABITRIL [Suspect]
     Indication: PARTIAL SEIZURES
     Dosage: 4TIMES DAILY PO
     Route: 048
     Dates: start: 20070606, end: 20091231

REACTIONS (7)
  - AGITATION [None]
  - DYSKINESIA [None]
  - HOSTILITY [None]
  - MEMORY IMPAIRMENT [None]
  - SUICIDAL IDEATION [None]
  - TREMOR [None]
  - VISUAL ACUITY REDUCED [None]
